FAERS Safety Report 4722885-1 (Version None)
Quarter: 2005Q3

REPORT INFORMATION
  Report Type: 
  Country: None (occurrence: None)
  Receive Date: 20050722
  Receipt Date: 20050718
  Transmission Date: 20060218
  Serious: Yes (Life-Threatening)
  Sender: FDA-Public Use
  Company Number: PHFR2005GB02481

PATIENT
  Age: 65 Year
  Sex: Male

DRUGS (2)
  1. METHYLPHENIDATE HCL [Suspect]
     Indication: SOMNOLENCE
     Dosage: 10 MG, BID
     Route: 048
     Dates: end: 20050708
  2. GABAPENTIN [Suspect]
     Indication: PAIN
     Dosage: 200 MG, QID
     Route: 048
     Dates: end: 20050708

REACTIONS (1)
  - HAEMATURIA [None]
